FAERS Safety Report 10594393 (Version 3)
Quarter: 2015Q1

REPORT INFORMATION
  Report Type: Spontaneous
  Country: US (occurrence: US)
  Receive Date: 20141119
  Receipt Date: 20150114
  Transmission Date: 20150720
  Serious: No
  Sender: FDA-Public Use
  Company Number: US-GILEAD-2014-0123108

PATIENT
  Age: 58 Year
  Sex: Female

DRUGS (3)
  1. LETAIRIS [Suspect]
     Active Substance: AMBRISENTAN
     Indication: PRODUCT USED FOR UNKNOWN INDICATION
     Dosage: 10 MG, QD
     Route: 065
     Dates: start: 20131205
  2. ORENITRAM [Concomitant]
     Active Substance: TREPROSTINIL
     Dosage: 2 MG, TID
     Route: 065
  3. ADCIRCA [Concomitant]
     Active Substance: TADALAFIL
     Dosage: UNK

REACTIONS (5)
  - Headache [Unknown]
  - Diarrhoea [Unknown]
  - Oral disorder [Unknown]
  - Pain in jaw [Unknown]
  - Tooth disorder [Unknown]

NARRATIVE: CASE EVENT DATE: 20141110
